FAERS Safety Report 11391610 (Version 2)
Quarter: 2016Q2

REPORT INFORMATION
  Report Type: Spontaneous
  Country: JP (occurrence: JP)
  Receive Date: 20150818
  Receipt Date: 20160405
  Transmission Date: 20160815
  Serious: Yes (Hospitalization, Other)
  Sender: FDA-Public Use
  Company Number: JP-PFIZER INC-2015267503

PATIENT
  Age: 71 Year
  Sex: Female
  Weight: 35 kg

DRUGS (21)
  1. CAMPTO [Suspect]
     Active Substance: IRINOTECAN
     Indication: PANCREATIC CARCINOMA
     Dosage: 187.5 MG, 1X/DAY
     Route: 041
     Dates: start: 20140731, end: 20140731
  2. CAMPTO [Suspect]
     Active Substance: IRINOTECAN
     Dosage: 187.5 MG, 1X/DAY
     Route: 041
     Dates: start: 20140917, end: 20140917
  3. CAMPTO [Suspect]
     Active Substance: IRINOTECAN
     Dosage: 187.5 MG, 1X/DAY
     Route: 041
     Dates: start: 20141029, end: 20141029
  4. CAMPTO [Suspect]
     Active Substance: IRINOTECAN
     Dosage: 187.5 MG, 1X/DAY
     Route: 041
     Dates: start: 20141001, end: 20141001
  5. ELPLAT [Suspect]
     Active Substance: OXALIPLATIN
     Indication: PANCREATIC CARCINOMA
     Dosage: 106.25 MG, 1X/DAY
     Route: 041
     Dates: start: 20140731, end: 20140731
  6. ELPLAT [Suspect]
     Active Substance: OXALIPLATIN
     Dosage: 81 MG, 1X/DAY
     Route: 041
     Dates: start: 20141015, end: 20141015
  7. ELPLAT [Suspect]
     Active Substance: OXALIPLATIN
     Dosage: 81 MG, 1X/DAY
     Route: 041
     Dates: start: 20141029, end: 20141029
  8. LEVOFOLINATE [Suspect]
     Active Substance: LEVOLEUCOVORIN CALCIUM
     Indication: PANCREATIC CARCINOMA
     Dosage: 250 MG, 1X/DAY
     Route: 041
     Dates: start: 20140731, end: 20140731
  9. LEVOFOLINATE [Suspect]
     Active Substance: LEVOLEUCOVORIN CALCIUM
     Dosage: 250 MG, 1X/DAY
     Route: 041
     Dates: start: 20141029, end: 20141029
  10. 5-FU [Concomitant]
     Active Substance: FLUOROURACIL
     Indication: PANCREATIC CARCINOMA
     Dosage: 3000 MG/BODY/D1-2 (2390.4 MG/M2/D1-2)
     Route: 040
     Dates: start: 20140731, end: 20141029
  11. UNASYN S [Concomitant]
     Active Substance: AMPICILLIN SODIUM\SULBACTAM SODIUM
     Dosage: UNK
     Dates: start: 20141120, end: 20141217
  12. CAMPTO [Suspect]
     Active Substance: IRINOTECAN
     Dosage: 187.5 MG, 1X/DAY
     Route: 041
     Dates: start: 20140903, end: 20140903
  13. ELPLAT [Suspect]
     Active Substance: OXALIPLATIN
     Dosage: 81 MG, 1X/DAY
     Route: 041
     Dates: start: 20140917, end: 20140917
  14. HEPARIN SODIUM. [Concomitant]
     Active Substance: HEPARIN SODIUM
     Dosage: UNK
     Dates: start: 20141119, end: 20141217
  15. CAMPTO [Suspect]
     Active Substance: IRINOTECAN
     Dosage: 187.5 MG, 1X/DAY
     Route: 041
     Dates: start: 20141015, end: 20141015
  16. ELPLAT [Suspect]
     Active Substance: OXALIPLATIN
     Dosage: 81 MG, 1X/DAY
     Route: 041
     Dates: start: 20140903, end: 20140903
  17. LEVOFOLINATE [Suspect]
     Active Substance: LEVOLEUCOVORIN CALCIUM
     Dosage: 250 MG, 1X/DAY
     Route: 041
     Dates: start: 20140903, end: 20140903
  18. LEVOFOLINATE [Suspect]
     Active Substance: LEVOLEUCOVORIN CALCIUM
     Dosage: 250 MG, 1X/DAY
     Route: 041
     Dates: start: 20141015, end: 20141015
  19. LEVOFOLINATE [Suspect]
     Active Substance: LEVOLEUCOVORIN CALCIUM
     Dosage: 250 MG, 1X/DAY
     Route: 041
     Dates: start: 20141001, end: 20141001
  20. ELPLAT [Suspect]
     Active Substance: OXALIPLATIN
     Dosage: 81 MG, 1X/DAY
     Route: 041
     Dates: start: 20141001, end: 20141001
  21. LEVOFOLINATE [Suspect]
     Active Substance: LEVOLEUCOVORIN CALCIUM
     Dosage: 250 MG, 1X/DAY
     Route: 041
     Dates: start: 20140917, end: 20140917

REACTIONS (12)
  - Lung infection [Recovered/Resolved]
  - Neutrophil count decreased [Recovered/Resolved]
  - Alanine aminotransferase increased [Recovered/Resolved]
  - Fatigue [Not Recovered/Not Resolved]
  - Embolism [Recovering/Resolving]
  - Aspartate aminotransferase increased [Recovered/Resolved]
  - White blood cell count decreased [Recovered/Resolved]
  - Peripheral sensory neuropathy [Recovered/Resolved]
  - Pyrexia [Recovered/Resolved]
  - Haemoglobin decreased [Recovering/Resolving]
  - Decreased appetite [Not Recovered/Not Resolved]
  - Diarrhoea [Recovered/Resolved]

NARRATIVE: CASE EVENT DATE: 20140814
